FAERS Safety Report 6321353-3 (Version None)
Quarter: 2009Q3

REPORT INFORMATION
  Report Type: 
  Country: None (occurrence: None)
  Receive Date: 20090822
  Receipt Date: 20090116
  Transmission Date: 20100115
  Serious: No
  Sender: FDA-Public Use
  Company Number: US-ABBOTT-09P-163-0498456-00

PATIENT
  Sex: Male

DRUGS (16)
  1. NIASPAN [Suspect]
     Indication: DRUG USE FOR UNKNOWN INDICATION
     Dates: start: 20090113
  2. LOVASTATIN [Concomitant]
     Indication: DRUG USE FOR UNKNOWN INDICATION
  3. PLAVIX [Concomitant]
     Indication: DRUG USE FOR UNKNOWN INDICATION
  4. BENAZEPRIL HYDROCHLORIDE [Concomitant]
     Indication: DRUG USE FOR UNKNOWN INDICATION
  5. PRILOSEC [Concomitant]
     Indication: DRUG USE FOR UNKNOWN INDICATION
  6. XANAX [Concomitant]
     Indication: DRUG USE FOR UNKNOWN INDICATION
  7. FUROSEMIDE [Concomitant]
     Indication: DRUG USE FOR UNKNOWN INDICATION
  8. MAGNESIUM [Concomitant]
     Indication: DRUG USE FOR UNKNOWN INDICATION
  9. POTASSIUM CHLORIDE [Concomitant]
     Indication: DRUG USE FOR UNKNOWN INDICATION
  10. CELEBREX [Concomitant]
     Indication: DRUG USE FOR UNKNOWN INDICATION
  11. FERRO-SEQUELS [Concomitant]
     Indication: DRUG USE FOR UNKNOWN INDICATION
  12. TAZTIA [Concomitant]
     Indication: DRUG USE FOR UNKNOWN INDICATION
  13. VIT B2 [Concomitant]
     Indication: DRUG USE FOR UNKNOWN INDICATION
  14. VIT B5 [Concomitant]
     Indication: DRUG USE FOR UNKNOWN INDICATION
  15. VIT B6 [Concomitant]
     Indication: DRUG USE FOR UNKNOWN INDICATION
  16. VIT B12 [Concomitant]
     Indication: DRUG USE FOR UNKNOWN INDICATION

REACTIONS (1)
  - HYPERHIDROSIS [None]
